FAERS Safety Report 20805103 (Version 2)
Quarter: 2022Q2

REPORT INFORMATION
  Report Type: Spontaneous
  Country: US (occurrence: US)
  Receive Date: 20220509
  Receipt Date: 20220529
  Transmission Date: 20220721
  Serious: No
  Sender: FDA-Public Use
  Company Number: US-BRISTOL-MYERS SQUIBB COMPANY-2022-026695

PATIENT
  Age: 78 Year
  Sex: Female

DRUGS (1)
  1. REVLIMID [Suspect]
     Active Substance: LENALIDOMIDE
     Indication: Plasma cell myeloma
     Dosage: DOSE: 10 MILLIGRAM , FREQ: TAKE 1 CAPSULE BY MOUTH EVERY MORNING FOR 14 DAYS ON, THEN 7 DAYS OFF
     Route: 048
     Dates: start: 20220330

REACTIONS (9)
  - Musculoskeletal pain [Not Recovered/Not Resolved]
  - Arthralgia [Unknown]
  - Pruritus [Recovered/Resolved]
  - Hordeolum [Unknown]
  - Visual impairment [Unknown]
  - Fatigue [Unknown]
  - Hypoglycaemia [Recovered/Resolved]
  - Intentional product use issue [Unknown]
  - Somnolence [Unknown]
